FAERS Safety Report 25612737 (Version 2)
Quarter: 2025Q3

REPORT INFORMATION
  Report Type: Spontaneous
  Country: RU (occurrence: RU)
  Receive Date: 20250728
  Receipt Date: 20250807
  Transmission Date: 20251020
  Serious: Yes (Other)
  Sender: ALEXION PHARMACEUTICALS
  Company Number: RU-ASTRAZENECA-202507EAF019103RU

PATIENT
  Age: 16 Year
  Sex: Female

DRUGS (4)
  1. NEXIUM [Suspect]
     Active Substance: ESOMEPRAZOLE MAGNESIUM
     Indication: Product used for unknown indication
     Route: 065
  2. PANCREATIN [Concomitant]
     Active Substance: PANCRELIPASE
     Route: 065
  3. ARTICHOKE [Concomitant]
     Active Substance: ARTICHOKE
     Route: 065
  4. SOMATOSTATIN [Concomitant]
     Active Substance: SOMATOSTATIN
     Route: 065

REACTIONS (6)
  - Blood test abnormal [Unknown]
  - Anaemia [Unknown]
  - Lymphopenia [Unknown]
  - Dyslipidaemia [Unknown]
  - Systemic candida [Unknown]
  - Off label use [Unknown]
